FAERS Safety Report 15083932 (Version 2)
Quarter: 2018Q3

REPORT INFORMATION
  Report Type: Report from Study
  Country: US (occurrence: US)
  Receive Date: 20180628
  Receipt Date: 20180927
  Transmission Date: 20181010
  Serious: No
  Sender: FDA-Public Use
  Company Number: US-CLOVIS ONCOLOGY-CLO-2018-000731

PATIENT
  Age: 70 Year
  Sex: Female

DRUGS (1)
  1. RUBRACA [Suspect]
     Active Substance: RUCAPARIB CAMSYLATE
     Indication: OVARIAN CANCER
     Dosage: 600 MG, BID
     Route: 048
     Dates: start: 20180613

REACTIONS (11)
  - Limb injury [Unknown]
  - Incisional hernia [Unknown]
  - Constipation [Unknown]
  - Blood glucose decreased [Unknown]
  - Nausea [Unknown]
  - Abdominal discomfort [Unknown]
  - Haemoglobin decreased [Unknown]
  - Increased appetite [Unknown]
  - Weight increased [Unknown]
  - Sleep disorder [Unknown]
  - Diarrhoea [Unknown]

NARRATIVE: CASE EVENT DATE: 2018
